FAERS Safety Report 6636986-4 (Version None)
Quarter: 2010Q1

REPORT INFORMATION
  Report Type: 
  Country: None (occurrence: None)
  Receive Date: 20100316
  Receipt Date: 20100304
  Transmission Date: 20100710
  Serious: Yes (Life-Threatening)
  Sender: FDA-Public Use
  Company Number: GB-PFIZER INC-2009296542

PATIENT
  Age: 33 Year
  Weight: 80 kg

DRUGS (3)
  1. CHAMPIX [Suspect]
     Dosage: 500 UG, UNK
     Route: 048
     Dates: start: 20090925, end: 20091001
  2. CITALOPRAM [Concomitant]
     Indication: DYSTHYMIC DISORDER
     Dosage: 20 MG, UNK
     Route: 048
     Dates: start: 20030512
  3. YASMIN [Concomitant]
     Indication: CONTRACEPTION
     Dosage: 1 DF, UNK
     Route: 048
     Dates: start: 20030101

REACTIONS (4)
  - CRYING [None]
  - DEPRESSION [None]
  - FEELING ABNORMAL [None]
  - HALLUCINATION [None]
